FAERS Safety Report 20828939 (Version 2)
Quarter: 2022Q2

REPORT INFORMATION
  Report Type: Spontaneous
  Country: MX (occurrence: MX)
  Receive Date: 20220513
  Receipt Date: 20220518
  Transmission Date: 20220721
  Serious: No
  Sender: FDA-Public Use
  Company Number: MX-NOVARTISPH-NVSC2022MX108924

PATIENT
  Age: 15 Year
  Sex: Female

DRUGS (2)
  1. LEVETIRACETAM [Suspect]
     Active Substance: LEVETIRACETAM
     Indication: Myoclonus
     Dosage: UNK
     Route: 065
  2. VALPROIC ACID [Suspect]
     Active Substance: VALPROIC ACID
     Indication: Myoclonus
     Dosage: UNK (INITIAL DISTRIBUTION OF 1:1, PROGRESSING TO 2:1 AND WITH AN ADEQUATE RESPONSE IN 2.5:1)
     Route: 065

REACTIONS (1)
  - Drug ineffective [Unknown]
